FAERS Safety Report 13449876 (Version 1)
Quarter: 2017Q2

REPORT INFORMATION
  Report Type: Spontaneous
  Country: US (occurrence: US)
  Receive Date: 20170417
  Receipt Date: 20170417
  Transmission Date: 20170830
  Serious: No
  Sender: FDA-Public Use
  Company Number: US-BION-20160184

PATIENT
  Age: 50 Year
  Sex: Female
  Weight: 45.36 kg

DRUGS (1)
  1. ALEVE [Suspect]
     Active Substance: NAPROXEN SODIUM
     Indication: ARTHRALGIA
     Dosage: 2 CAPSULES TAKEN ONCE DAILY
     Route: 048
     Dates: start: 201604, end: 201605

REACTIONS (3)
  - Intentional overdose [Unknown]
  - Drug ineffective [Unknown]
  - Swelling face [Recovered/Resolved]
